FAERS Safety Report 24812910 (Version 1)
Quarter: 2025Q1

REPORT INFORMATION
  Report Type: Report from Study
  Country: CA (occurrence: CA)
  Receive Date: 20250107
  Receipt Date: 20250107
  Transmission Date: 20250409
  Serious: No
  Sender: ROCHE
  Company Number: CA-ROCHE-10000171514

PATIENT
  Sex: Male

DRUGS (1)
  1. OCREVUS [Suspect]
     Active Substance: OCRELIZUMAB
     Indication: Primary progressive multiple sclerosis
     Dosage: MORE DOSAGE INFORMATION IS 300 MG AT DAY 0 AND 14, THEN 600 MG EVERY 6 MONTHS
     Route: 042
     Dates: start: 20221216

REACTIONS (11)
  - Influenza [Recovered/Resolved]
  - Candida infection [Recovered/Resolved]
  - Axillary mass [Not Recovered/Not Resolved]
  - Mass [Not Recovered/Not Resolved]
  - Fall [Unknown]
  - Joint stiffness [Not Recovered/Not Resolved]
  - Gait inability [Not Recovered/Not Resolved]
  - Nausea [Not Recovered/Not Resolved]
  - Asthenia [Not Recovered/Not Resolved]
  - Dysarthria [Not Recovered/Not Resolved]
  - Dysphemia [Not Recovered/Not Resolved]
